FAERS Safety Report 12811261 (Version 1)
Quarter: 2016Q4

REPORT INFORMATION
  Report Type: Spontaneous
  Country: JP (occurrence: JP)
  Receive Date: 20161005
  Receipt Date: 20161005
  Transmission Date: 20170207
  Serious: Yes (Hospitalization)
  Sender: FDA-Public Use
  Company Number: JP-VALIDUS PHARMACEUTICALS LLC-JP-2016VAL002779

PATIENT

DRUGS (3)
  1. CLAFORAN [Suspect]
     Active Substance: CEFOTAXIME SODIUM
     Indication: PYREXIA
     Dosage: 150 MG/KG, QD
     Route: 065
     Dates: start: 20160808, end: 20160810
  2. CEFOTAXIME [Suspect]
     Active Substance: CEFOTAXIME SODIUM
     Indication: PYREXIA
     Dosage: 150 MG/KG, QD
     Route: 065
     Dates: start: 20160808, end: 20160810
  3. AMPICILIN [Suspect]
     Active Substance: AMPICILLIN
     Indication: PYREXIA
     Dosage: 200 MG/KG, QD
     Route: 048
     Dates: start: 20160808, end: 20160810

REACTIONS (1)
  - Neutrophil count decreased [Recovered/Resolved]

NARRATIVE: CASE EVENT DATE: 20160810
